FAERS Safety Report 11231178 (Version 1)
Quarter: 2015Q2

REPORT INFORMATION
  Report Type: Spontaneous
  Country: US (occurrence: None)
  Receive Date: 20150629
  Receipt Date: 20150629
  Transmission Date: 20150821
  Serious: Yes (Disabling, Other)
  Sender: FDA-Public Use
  Company Number: None

PATIENT
  Age: 29 Year
  Sex: Female
  Weight: 97.52 kg

DRUGS (11)
  1. ZINC [Concomitant]
     Active Substance: ZINC\ZINC CHLORIDE
  2. E3 [Concomitant]
  3. AFA [Concomitant]
  4. ADDERALL [Concomitant]
     Active Substance: AMPHETAMINE ASPARTATE\AMPHETAMINE SULFATE\DEXTROAMPHETAMINE SACCHARATE\DEXTROAMPHETAMINE SULFATE
  5. PROBIOTICS [Concomitant]
     Active Substance: PROBIOTICS NOS
  6. CHLOROPHYII [Concomitant]
  7. COD LIVER OIL [Concomitant]
     Active Substance: COD LIVER OIL
  8. MIRENA [Suspect]
     Active Substance: LEVONORGESTREL
  9. MAGNESIUM [Concomitant]
     Active Substance: MAGNESIUM
  10. VITAMIN D [Concomitant]
     Active Substance: CHOLECALCIFEROL
  11. B12 COMPLEX [Concomitant]

REACTIONS (8)
  - Mood altered [None]
  - Weight decreased [None]
  - Adrenal disorder [None]
  - Drug ineffective [None]
  - Renal failure [None]
  - Feeling abnormal [None]
  - Malaise [None]
  - Autoimmune thyroiditis [None]

NARRATIVE: CASE EVENT DATE: 20130321
